FAERS Safety Report 4900598-0 (Version None)
Quarter: 2006Q1

REPORT INFORMATION
  Report Type: 
  Country: None (occurrence: None)
  Receive Date: 20060203
  Receipt Date: 20060120
  Transmission Date: 20060701
  Serious: Yes (Other)
  Sender: FDA-Public Use
  Company Number: US-AMGEN-STX165830

PATIENT
  Age: 64 Year
  Sex: Male

DRUGS (5)
  1. ENBREL [Suspect]
     Indication: PUSTULAR PSORIASIS
     Dates: start: 20051201
  2. LIPITOR [Concomitant]
  3. TOPROL-XL [Concomitant]
  4. ASPIRIN [Concomitant]
  5. FLOMAX [Concomitant]

REACTIONS (2)
  - CONDITION AGGRAVATED [None]
  - PUSTULAR PSORIASIS [None]
